FAERS Safety Report 5706729-7 (Version None)
Quarter: 2008Q2

REPORT INFORMATION
  Report Type: 
  Country: None (occurrence: None)
  Receive Date: 20080416
  Receipt Date: 20080412
  Transmission Date: 20081010
  Serious: Yes (Life-Threatening)
  Sender: FDA-Public Use
  Company Number: UY-BAYER-200813083LA

PATIENT
  Age: 34 Year
  Sex: Female
  Weight: 68 kg

DRUGS (1)
  1. YASMIN [Suspect]
     Indication: ORAL CONTRACEPTION
     Route: 048
     Dates: start: 20080225, end: 20080317

REACTIONS (3)
  - ABDOMINAL PAIN [None]
  - ECTOPIC PREGNANCY [None]
  - MENORRHAGIA [None]
